FAERS Safety Report 4995040-8 (Version None)
Quarter: 2006Q2

REPORT INFORMATION
  Report Type: 
  Country: None (occurrence: None)
  Receive Date: 20060508
  Receipt Date: 20060426
  Transmission Date: 20061013
  Serious: Yes (Other)
  Sender: FDA-Public Use
  Company Number: JP-JPN-A200601395

PATIENT
  Age: 1 Year
  Sex: Female

DRUGS (4)
  1. AUGMENTIN '125' [Suspect]
     Indication: OTITIS MEDIA
     Route: 048
     Dates: start: 20060329, end: 20060405
  2. AUGMENTIN '125' [Suspect]
     Route: 065
     Dates: start: 20060412, end: 20060416
  3. AUGMENTIN '125' [Suspect]
     Dosage: 1.56MG TWICE PER DAY
     Route: 048
     Dates: start: 20060424
  4. FLOMOX [Concomitant]
     Indication: OTITIS MEDIA
     Route: 065
     Dates: start: 20060403, end: 20060405

REACTIONS (2)
  - COLITIS PSEUDOMEMBRANOUS [None]
  - HAEMATOCHEZIA [None]
